FAERS Safety Report 19119342 (Version 1)
Quarter: 2021Q2

REPORT INFORMATION
  Report Type: Spontaneous
  Country: US (occurrence: US)
  Receive Date: 20210411
  Receipt Date: 20210411
  Transmission Date: 20210717
  Serious: Yes (Other)
  Sender: FDA-Public Use
  Company Number: US-JNJFOC-20210410420

PATIENT
  Age: 43 Year
  Sex: Male

DRUGS (2)
  1. HUMIRA [Suspect]
     Active Substance: ADALIMUMAB
     Indication: COLITIS ULCERATIVE
     Route: 058
  2. REMICADE [Suspect]
     Active Substance: INFLIXIMAB
     Indication: PRODUCT USED FOR UNKNOWN INDICATION
     Route: 042

REACTIONS (11)
  - Alcohol rehabilitation [Recovering/Resolving]
  - Adverse food reaction [Unknown]
  - Arthralgia [Unknown]
  - Post procedural complication [Recovered/Resolved]
  - Rash papular [Not Recovered/Not Resolved]
  - Diarrhoea [Recovered/Resolved]
  - Wisdom teeth removal [Unknown]
  - Mental disorder [Not Recovered/Not Resolved]
  - Drug hypersensitivity [Recovered/Resolved]
  - Hypoacusis [Not Recovered/Not Resolved]
  - Inflammation [Recovered/Resolved]
